FAERS Safety Report 9342962 (Version 2)
Quarter: 2013Q4

REPORT INFORMATION
  Report Type: Spontaneous
  Country: US (occurrence: US)
  Receive Date: 20130611
  Receipt Date: 20131220
  Transmission Date: 20140711
  Serious: Yes (Death, Hospitalization)
  Sender: FDA-Public Use
  Company Number: US-B.I. PHARMACEUTICALS,INC./RIDGEFIELD-2013-BI-16092BP

PATIENT
  Sex: Female
  Weight: 45.36 kg

DRUGS (10)
  1. PRADAXA [Suspect]
     Dates: start: 20111214, end: 20120128
  2. METFORMIN [Concomitant]
  3. COUMADIN [Concomitant]
  4. LEVOTHYROXIN [Concomitant]
  5. ALENDRONATE SODIUM [Concomitant]
  6. DIGOXIN [Concomitant]
  7. GEMFIBROZIL [Concomitant]
  8. FUROSEMIDE [Concomitant]
  9. POTASSIUM CHLORIDE [Concomitant]
  10. TRAMADOL HCL [Concomitant]

REACTIONS (1)
  - Gastrointestinal haemorrhage [Fatal]
